FAERS Safety Report 16772360 (Version 1)
Quarter: 2019Q4

REPORT INFORMATION
  Report Type: Spontaneous
  Country: US (occurrence: US)
  Receive Date: 20190904
  Receipt Date: 20190904
  Transmission Date: 20200122
  Serious: No
  Sender: FDA-Public Use
  Company Number: None

PATIENT
  Age: 46 Year
  Sex: Female
  Weight: 88.65 kg

DRUGS (2)
  1. JANUVIA [Concomitant]
     Active Substance: SITAGLIPTIN PHOSPHATE
  2. TRULICITY [Suspect]
     Active Substance: DULAGLUTIDE
     Indication: TYPE 2 DIABETES MELLITUS
     Dosage: ?          QUANTITY:1 INJECTION(S);OTHER FREQUENCY:1 PER WEEK;?
     Route: 030
     Dates: start: 20190625, end: 20190801

REACTIONS (6)
  - Hypersensitivity [None]
  - Lip swelling [None]
  - Dizziness [None]
  - Swelling face [None]
  - Dyspnoea [None]
  - Swollen tongue [None]

NARRATIVE: CASE EVENT DATE: 20190729
